FAERS Safety Report 16170272 (Version 3)
Quarter: 2019Q2

REPORT INFORMATION
  Report Type: Spontaneous
  Country: None (occurrence: ES)
  Receive Date: 20190408
  Receipt Date: 20190621
  Transmission Date: 20190711
  Serious: Yes (Hospitalization, Other)
  Sender: FDA-Public Use
  Company Number: ES-ASCEND THERAPEUTICS-2065464

PATIENT
  Age: 35 Year
  Sex: Male

DRUGS (2)
  1. ESTROGEL [Suspect]
     Active Substance: ESTRADIOL
     Indication: FEMINISATION ACQUIRED
     Route: 062
  2. CYPROTERONE ACETATE?INDICATIONS FOR USE: 1. MENINGIOMA, 2. FEMINIZING [Suspect]
     Active Substance: CYPROTERONE ACETATE

REACTIONS (6)
  - Headache [Recovering/Resolving]
  - Visual impairment [Recovering/Resolving]
  - Meningioma [Recovered/Resolved]
  - Medication error [None]
  - Off label use [None]
  - Optic atrophy [Unknown]
